FAERS Safety Report 12430751 (Version 1)
Quarter: 2016Q2

REPORT INFORMATION
  Report Type: Spontaneous
  Country: US (occurrence: US)
  Receive Date: 20160602
  Receipt Date: 20160602
  Transmission Date: 20160815
  Serious: No
  Sender: FDA-Public Use
  Company Number: US-PURDUE-USA-2016-0129924

PATIENT
  Sex: Female

DRUGS (1)
  1. MORPHINE SULFATE (SIMILAR TO NDA 19-516) [Suspect]
     Active Substance: MORPHINE SULFATE
     Indication: SPINAL CORD INJURY
     Dosage: 30 MG, BID
     Route: 048
     Dates: end: 2009

REACTIONS (5)
  - Constipation [Unknown]
  - Unevaluable event [Unknown]
  - Pain [Unknown]
  - Dysuria [Unknown]
  - Activities of daily living impaired [Unknown]
